FAERS Safety Report 7649196-9 (Version None)
Quarter: 2011Q3

REPORT INFORMATION
  Report Type: 
  Country: None (occurrence: None)
  Receive Date: 20110726
  Receipt Date: 20110718
  Transmission Date: 20111222
  Serious: Yes (Hospitalization)
  Sender: FDA-Public Use
  Company Number: USA/USA/11/0019035

PATIENT
  Age: 65 Year
  Sex: Female

DRUGS (9)
  1. CRESTOR [Concomitant]
  2. FEXOFENADINE HCL [Suspect]
     Indication: MULTIPLE ALLERGIES
     Dosage: 180 MG, 1 IN 1 D, ORAL
     Route: 048
     Dates: start: 20110621
  3. HYDROCHLOROTHIAZIDE [Concomitant]
  4. ASPIRIN [Concomitant]
  5. FOSAMAX [Concomitant]
  6. METFORMIN (METFORMIN HYDROCHLORIDE) [Concomitant]
  7. RAMIPRIL [Concomitant]
  8. POTASSIUM (POTASSIUM CHLORIDE) [Concomitant]
  9. RANEXA [Concomitant]

REACTIONS (6)
  - HYPOTENSION [None]
  - SKIN DISCOLOURATION [None]
  - VOMITING [None]
  - CHEST PAIN [None]
  - DIZZINESS [None]
  - CARDIAC ENZYMES INCREASED [None]
